FAERS Safety Report 5114049-7 (Version None)
Quarter: 2006Q3

REPORT INFORMATION
  Report Type: 
  Country: None (occurrence: None)
  Receive Date: 20060925
  Receipt Date: 20060913
  Transmission Date: 20061208
  Serious: Yes (Hospitalization)
  Sender: FDA-Public Use
  Company Number: US-MERCK-0609USA04349

PATIENT
  Age: 80 Year
  Sex: Female

DRUGS (2)
  1. ZOCOR [Suspect]
     Route: 065
  2. METHOTREXATE [Suspect]
     Route: 065

REACTIONS (1)
  - PANCYTOPENIA [None]
